FAERS Safety Report 8471386-6 (Version None)
Quarter: 2012Q2

REPORT INFORMATION
  Report Type: 
  Country: None (occurrence: None)
  Receive Date: 20120627
  Receipt Date: 20120620
  Transmission Date: 20120825
  Serious: Yes (Other)
  Sender: FDA-Public Use
  Company Number: JP-PFIZER INC-2012148166

PATIENT
  Age: 69 Year
  Sex: Male
  Weight: 54 kg

DRUGS (8)
  1. FLUOROURACIL [Concomitant]
     Dosage: 500 MG, UNK
     Route: 013
     Dates: start: 20100201
  2. FLUOROURACIL [Concomitant]
     Dosage: 500 MG, UNK
     Route: 013
     Dates: start: 20100701
  3. CISPLATIN [Suspect]
     Dosage: 20 MG/M2, UNK
     Route: 013
     Dates: start: 20100401
  4. CISPLATIN [Suspect]
     Indication: HEPATIC NEOPLASM MALIGNANT
     Dosage: 20 MG/M2, UNK
     Route: 013
     Dates: start: 20091001
  5. CISPLATIN [Suspect]
     Dosage: 20 MG/M2, UNK
     Route: 013
     Dates: start: 20100201
  6. FLUOROURACIL [Concomitant]
     Indication: HEPATIC NEOPLASM MALIGNANT
     Dosage: 500 MG, UNK
     Route: 013
     Dates: start: 20091001
  7. CISPLATIN [Suspect]
     Dosage: 20 MG/M2, UNK
     Route: 013
     Dates: start: 20100701
  8. FLUOROURACIL [Concomitant]
     Dosage: 500 MG, UNK
     Route: 013
     Dates: start: 20100401

REACTIONS (3)
  - DISEASE PROGRESSION [None]
  - LUNG DISORDER [None]
  - HEPATIC NEOPLASM MALIGNANT [None]
